FAERS Safety Report 6657426-5 (Version None)
Quarter: 2010Q1

REPORT INFORMATION
  Report Type: 
  Country: None (occurrence: None)
  Receive Date: 20100330
  Receipt Date: 20100318
  Transmission Date: 20100710
  Serious: Yes (Other)
  Sender: FDA-Public Use
  Company Number: US-PFIZER INC-2010035776

PATIENT
  Sex: Male

DRUGS (1)
  1. CHANTIX [Suspect]
     Indication: SMOKING CESSATION THERAPY
     Dosage: UNK
     Route: 048
     Dates: start: 20080225, end: 20081204

REACTIONS (11)
  - AGGRESSION [None]
  - ANXIETY [None]
  - HALLUCINATION [None]
  - INSOMNIA [None]
  - MAJOR DEPRESSION [None]
  - MENTAL DISORDER [None]
  - NERVOUS SYSTEM DISORDER [None]
  - NIGHTMARE [None]
  - PARANOIA [None]
  - POST-TRAUMATIC STRESS DISORDER [None]
  - SUICIDAL IDEATION [None]
